FAERS Safety Report 20126475 (Version 2)
Quarter: 2022Q1

REPORT INFORMATION
  Report Type: Spontaneous
  Country: RU (occurrence: RU)
  Receive Date: 20211129
  Receipt Date: 20220114
  Transmission Date: 20220423
  Serious: Yes (Death, Other)
  Sender: FDA-Public Use
  Company Number: RU-ALXN-A202112822

PATIENT

DRUGS (1)
  1. STRENSIQ [Suspect]
     Active Substance: ASFOTASE ALFA
     Indication: Hypophosphatasia
     Dosage: 2 MG/KG, TIW (28 MG - 0.7 ML)
     Route: 065
     Dates: start: 20210830

REACTIONS (2)
  - Bronchopulmonary dysplasia [Fatal]
  - Pneumonia [Fatal]
